FAERS Safety Report 9077589 (Version 1)
Quarter: 2013Q1

REPORT INFORMATION
  Report Type: Report from Study
  Country: US (occurrence: US)
  Receive Date: 20130130
  Receipt Date: 20130130
  Transmission Date: 20140127
  Serious: No
  Sender: FDA-Public Use
  Company Number: US-ABBOTT-12P-163-0970177-00

PATIENT
  Age: 47 Year
  Sex: Female

DRUGS (8)
  1. HUMIRA 40 MG/0.8 ML PEN [Suspect]
     Indication: PSORIATIC ARTHROPATHY
     Dosage: INITIAL DOSE
     Dates: start: 20120809
  2. PIROXICAM [Concomitant]
     Indication: PSORIATIC ARTHROPATHY
  3. OMEPRAZOLE [Concomitant]
     Indication: GASTROOESOPHAGEAL REFLUX DISEASE
  4. CITALOPRAM [Concomitant]
     Indication: ANXIETY
  5. FOLIC ACID [Concomitant]
     Indication: PRODUCT USED FOR UNKNOWN INDICATION
  6. ZYRTEC [Concomitant]
     Indication: HYPERSENSITIVITY
  7. MULTIVITAMINS [Concomitant]
     Indication: PRODUCT USED FOR UNKNOWN INDICATION
     Dosage: DAILY
  8. FIBER [Concomitant]
     Indication: PRODUCT USED FOR UNKNOWN INDICATION
     Dosage: DAILY

REACTIONS (1)
  - Sinusitis [Not Recovered/Not Resolved]
